FAERS Safety Report 22161553 (Version 7)
Quarter: 2023Q2

REPORT INFORMATION
  Report Type: Spontaneous
  Country: GR (occurrence: GR)
  Receive Date: 20230331
  Receipt Date: 20230615
  Transmission Date: 20230722
  Serious: Yes (Life-Threatening, Hospitalization, Other)
  Sender: FDA-Public Use
  Company Number: GR-ABBVIE-4700475

PATIENT
  Age: 65 Year
  Sex: Male

DRUGS (1)
  1. ADALIMUMAB [Suspect]
     Active Substance: ADALIMUMAB
     Indication: Psoriasis
     Dosage: UNK
     Route: 058

REACTIONS (18)
  - Haemophagocytic lymphohistiocytosis [Recovering/Resolving]
  - Encephalitis [Recovering/Resolving]
  - Tuberculosis of central nervous system [Unknown]
  - Mycobacterium avium complex infection [Recovering/Resolving]
  - Pancytopenia [Unknown]
  - Altered state of consciousness [Unknown]
  - Pyrexia [Recovered/Resolved]
  - Pyrexia [Recovered/Resolved]
  - Atypical mycobacterial infection [Recovering/Resolving]
  - Ascites [Unknown]
  - Tuberculosis [Recovering/Resolving]
  - Blood alkaline phosphatase increased [Recovered/Resolved]
  - Lymphadenopathy [Unknown]
  - Splenomegaly [Unknown]
  - C-reactive protein increased [Unknown]
  - Granuloma [Unknown]
  - Gamma-glutamyltransferase increased [Recovered/Resolved]
  - Hepatomegaly [Unknown]
